FAERS Safety Report 15020294 (Version 1)
Quarter: 2018Q2

REPORT INFORMATION
  Report Type: Spontaneous
  Country: GB (occurrence: GB)
  Receive Date: 20180618
  Receipt Date: 20180618
  Transmission Date: 20180711
  Serious: Yes (Hospitalization)
  Sender: FDA-Public Use
  Company Number: GB-ABBVIE-18S-167-2390615-00

PATIENT
  Age: 15 Year
  Sex: Female
  Weight: 62 kg

DRUGS (13)
  1. SUDOCREM [Concomitant]
     Active Substance: LANOLIN\ZINC OXIDE
     Indication: PRODUCT USED FOR UNKNOWN INDICATION
     Dosage: USE AS DIRECTED
     Dates: start: 20170823, end: 20170824
  2. CIPROFLOXACIN. [Concomitant]
     Active Substance: CIPROFLOXACIN
     Indication: PRODUCT USED FOR UNKNOWN INDICATION
     Dosage: 10 ML, QD
     Dates: start: 20171113
  3. IBUPROFEN. [Concomitant]
     Active Substance: IBUPROFEN
     Indication: PRODUCT USED FOR UNKNOWN INDICATION
     Dosage: UNK
  4. HYDROXYZINE [Concomitant]
     Active Substance: HYDROXYZINE HYDROCHLORIDE
     Indication: PRODUCT USED FOR UNKNOWN INDICATION
     Dosage: ON NIGHT
     Dates: start: 20130701
  5. CAPASAL [Concomitant]
     Indication: PRODUCT USED FOR UNKNOWN INDICATION
     Dosage: USE DAILY
  6. PARACETAMOL [Concomitant]
     Active Substance: ACETAMINOPHEN
     Indication: PRODUCT USED FOR UNKNOWN INDICATION
     Dosage: UNK
  7. PERMETHRIN. [Concomitant]
     Active Substance: PERMETHRIN
     Indication: PRODUCT USED FOR UNKNOWN INDICATION
     Dosage: USE AS DIRECTED
     Dates: start: 20170911, end: 20170918
  8. CLOTRIMAZOLE. [Concomitant]
     Active Substance: CLOTRIMAZOLE
     Indication: PRODUCT USED FOR UNKNOWN INDICATION
     Dosage: APPLY 2-3 TIMES/DAY
     Dates: start: 20170823, end: 20170830
  9. EUMOVATE [Concomitant]
     Active Substance: CLOBETASONE BUTYRATE
     Indication: PRODUCT USED FOR UNKNOWN INDICATION
     Dosage: 2 DF, QD
     Dates: start: 20170823, end: 20170920
  10. HYDROCORTISONE. [Concomitant]
     Active Substance: HYDROCORTISONE
     Indication: PRODUCT USED FOR UNKNOWN INDICATION
     Dosage: APPLY AS DIRECTED
     Dates: start: 20170823, end: 20170830
  11. CETIRIZINE [Concomitant]
     Active Substance: CETIRIZINE HYDROCHLORIDE
     Indication: PRODUCT USED FOR UNKNOWN INDICATION
     Dosage: 1 DF, QD
     Dates: start: 20160324
  12. CLARITHROMYCIN. [Suspect]
     Active Substance: CLARITHROMYCIN
     Indication: LOWER RESPIRATORY TRACT INFECTION
     Dosage: UNK
     Route: 065
  13. OTOMIZE [Concomitant]
     Active Substance: DEXAMETHASONE\NEOMYCIN SULFATE
     Indication: PRODUCT USED FOR UNKNOWN INDICATION
     Dosage: RIGHT EAR
     Route: 050
     Dates: start: 20170917, end: 20170924

REACTIONS (3)
  - Dyspnoea [Recovered/Resolved]
  - Papule [Recovered/Resolved]
  - Vomiting [Recovered/Resolved]

NARRATIVE: CASE EVENT DATE: 20171116
